FAERS Safety Report 8446012 (Version 5)
Quarter: 2013Q2

REPORT INFORMATION
  Report Type: Report from Study
  Country: BR (occurrence: BR)
  Receive Date: 20120307
  Receipt Date: 20130501
  Transmission Date: 20140414
  Serious: Yes (Hospitalization)
  Sender: FDA-Public Use
  Company Number: BR-ROCHE-784923

PATIENT
  Age: 55 Year
  Sex: Female
  Weight: 49.5 kg

DRUGS (7)
  1. RITUXIMAB [Suspect]
     Indication: RHEUMATOID ARTHRITIS
     Route: 042
     Dates: start: 20100801, end: 20120214
  2. ACTEMRA [Suspect]
     Indication: RHEUMATOID ARTHRITIS
     Route: 042
  3. DEFLANIL [Concomitant]
     Route: 065
  4. DEPURAN [Concomitant]
  5. DIOVAN [Concomitant]
     Route: 065
  6. CORTISONE [Concomitant]
  7. METHOTREXATE [Concomitant]
     Route: 065

REACTIONS (12)
  - Allergic respiratory symptom [Recovered/Resolved]
  - Suffocation feeling [Recovered/Resolved]
  - Dyspnoea [Recovered/Resolved]
  - Ill-defined disorder [Recovered/Resolved]
  - Contusion [Recovered/Resolved]
  - Excessive granulation tissue [Recovered/Resolved]
  - Infusion related reaction [Recovered/Resolved]
  - Hypersensitivity [Unknown]
  - Inflammation [Unknown]
  - Hypertension [Unknown]
  - Liver function test abnormal [Not Recovered/Not Resolved]
  - Abdominal distension [Recovered/Resolved]
